FAERS Safety Report 9281326 (Version 1)
Quarter: 2013Q2

REPORT INFORMATION
  Report Type: Spontaneous
  Country: US (occurrence: None)
  Receive Date: 20130503
  Receipt Date: 20130503
  Transmission Date: 20140414
  Serious: Yes (Hospitalization)
  Sender: FDA-Public Use
  Company Number: 2013P1005186

PATIENT
  Age: 24 Year
  Sex: Female

DRUGS (4)
  1. ALBENDAZOLE [Suspect]
     Indication: FILARIASIS LYMPHATIC
     Dates: start: 20120707
  2. ALBENDAZOLE [Suspect]
     Indication: ONCHOCERCIASIS
     Dates: start: 20120707
  3. MECTIZAN [Suspect]
     Indication: FILARIASIS LYMPHATIC
     Dates: start: 20120707
  4. MECTIZAN [Suspect]
     Indication: ONCHOCERCIASIS
     Dates: start: 20120707

REACTIONS (4)
  - Pruritus generalised [None]
  - Feeling cold [None]
  - Decreased appetite [None]
  - Blood glucose decreased [None]
